FAERS Safety Report 9709000 (Version 2)
Quarter: 2014Q1

REPORT INFORMATION
  Report Type: Spontaneous
  Country: US (occurrence: US)
  Receive Date: 20131125
  Receipt Date: 20140107
  Transmission Date: 20141002
  Serious: Yes (Other)
  Sender: FDA-Public Use
  Company Number: US-FRI-1000051521

PATIENT
  Sex: Female

DRUGS (8)
  1. VIIBRYD [Suspect]
     Indication: DEPRESSION
     Dosage: 10 MG
     Route: 048
     Dates: start: 20131109, end: 20131115
  2. VIIBRYD [Suspect]
     Indication: ANXIETY
     Dosage: 20 MG
     Route: 048
     Dates: start: 20131116, end: 201311
  3. VIIBRYD [Suspect]
     Indication: DEPRESSION
     Dosage: 40 MG
     Route: 048
     Dates: start: 201311, end: 201311
  4. VIIBRYD [Suspect]
     Indication: ANXIETY
     Dosage: 10 MG
     Route: 048
     Dates: start: 201311
  5. PROMETHAZINE [Concomitant]
     Indication: NAUSEA
  6. SODIUM BICARBONATE [Concomitant]
  7. SPIRONOLACTONE [Concomitant]
  8. OXYCODONE [Concomitant]
     Indication: PAIN

REACTIONS (9)
  - Exophthalmos [Recovered/Resolved]
  - Gait disturbance [Recovered/Resolved]
  - Dry mouth [Recovered/Resolved]
  - Fall [Recovered/Resolved]
  - Headache [Not Recovered/Not Resolved]
  - Anxiety [Recovering/Resolving]
  - Feeling abnormal [Recovering/Resolving]
  - Dizziness [Not Recovered/Not Resolved]
  - Amnesia [Not Recovered/Not Resolved]
